FAERS Safety Report 25947750 (Version 1)
Quarter: 2025Q4

REPORT INFORMATION
  Report Type: Spontaneous
  Country: EU (occurrence: EU)
  Receive Date: 20251022
  Receipt Date: 20251022
  Transmission Date: 20260119
  Serious: Yes (Other)
  Sender: AUROBINDO
  Company Number: EU-GLAXOSMITHKLINE INC-ES2025EME123900

PATIENT
  Age: 56 Year
  Sex: Female

DRUGS (2)
  1. POMALIDOMIDE [Suspect]
     Active Substance: POMALIDOMIDE
     Indication: Product used for unknown indication
     Dosage: UNK
     Route: 065
  2. BELANTAMAB MAFODOTIN [Suspect]
     Active Substance: BELANTAMAB MAFODOTIN
     Indication: Plasma cell myeloma
     Dosage: UNK
     Route: 065
     Dates: start: 20250127

REACTIONS (1)
  - Plasma cell myeloma [Not Recovered/Not Resolved]

NARRATIVE: CASE EVENT DATE: 20250922
